FAERS Safety Report 7989101-9 (Version None)
Quarter: 2011Q4

REPORT INFORMATION
  Report Type: 
  Country: None (occurrence: None)
  Receive Date: 20111219
  Receipt Date: 20111208
  Transmission Date: 20120403
  Serious: Yes (Hospitalization, Other)
  Sender: FDA-Public Use
  Company Number: US-US-EMD SERONO, INC.-7100606

PATIENT
  Age: 32 Year
  Sex: Female

DRUGS (4)
  1. MENOPUR [Concomitant]
     Indication: OVULATION INDUCTION
  2. FSH PLUS HCG [Concomitant]
     Indication: OVULATION INDUCTION
  3. OVIDREL [Suspect]
     Indication: OVULATION INDUCTION
  4. FEMERA (LETROZOLE) [Concomitant]
     Indication: OVULATION INDUCTION

REACTIONS (2)
  - MULTIPLE PREGNANCY [None]
  - OVARIAN CYST [None]
